FAERS Safety Report 9736316 (Version 1)
Quarter: 2013Q4

REPORT INFORMATION
  Report Type: Spontaneous
  Country: US (occurrence: None)
  Receive Date: 20131204
  Receipt Date: 20131204
  Transmission Date: 20140711
  Serious: Yes (Death)
  Sender: FDA-Public Use
  Company Number: US-AIKEM-000372

PATIENT
  Age: 41 Year
  Sex: Female

DRUGS (3)
  1. AMLODIPINE [Suspect]
     Route: 048
  2. AMITRIPTYLINE [Suspect]
  3. NAPROXEN(NAPROXEN) [Concomitant]

REACTIONS (1)
  - Completed suicide [None]
